FAERS Safety Report 12233456 (Version 1)
Quarter: 2016Q2

REPORT INFORMATION
  Report Type: Spontaneous
  Country: CN (occurrence: CN)
  Receive Date: 20160404
  Receipt Date: 20160404
  Transmission Date: 20160815
  Serious: Yes (Other)
  Sender: FDA-Public Use
  Company Number: CN-BAXTER-2016BAX016803

PATIENT
  Age: 40 Year
  Sex: Female
  Weight: 49 kg

DRUGS (10)
  1. CYCLOPHOSPHAMIDE. [Suspect]
     Active Substance: CYCLOPHOSPHAMIDE
     Dosage: DOSE R-INTRODUCED
     Route: 041
  2. XINSHUNER [Suspect]
     Active Substance: TROPISETRON HYDROCHLORIDE
     Indication: BREAST CANCER
     Route: 041
     Dates: start: 20150811, end: 20150811
  3. 0.9% SODIUM CHLORIDE INJECTION [Suspect]
     Active Substance: SODIUM CHLORIDE
     Indication: BREAST CANCER
     Route: 041
     Dates: start: 20150811, end: 20150811
  4. 0.9% SODIUM CHLORIDE INJECTION [Suspect]
     Active Substance: SODIUM CHLORIDE
     Indication: OFF LABEL USE
     Dosage: DOSE RE-INTRODUCED
     Route: 041
  5. PHARMORUBICIN [Suspect]
     Active Substance: EPIRUBICIN
     Indication: BREAST CANCER
     Route: 041
     Dates: start: 20150811, end: 20150811
  6. HISUN SPARCA [Suspect]
     Active Substance: SPARFLOXACIN
     Dosage: DOSE R-INTRODUCED
     Route: 041
  7. XINSHUNER [Suspect]
     Active Substance: TROPISETRON HYDROCHLORIDE
     Dosage: DOSE R-INTRODUCED
     Route: 041
  8. PHARMORUBICIN [Suspect]
     Active Substance: EPIRUBICIN
     Dosage: DOSE R-INTRODUCED
     Route: 041
  9. CYCLOPHOSPHAMIDE. [Suspect]
     Active Substance: CYCLOPHOSPHAMIDE
     Indication: BREAST CANCER
     Route: 041
     Dates: start: 20150811, end: 20150811
  10. HISUN SPARCA [Suspect]
     Active Substance: SPARFLOXACIN
     Indication: BREAST CANCER
     Route: 041
     Dates: start: 20150811, end: 20150811

REACTIONS (1)
  - Bone marrow failure [Recovering/Resolving]

NARRATIVE: CASE EVENT DATE: 20150820
